FAERS Safety Report 18050204 (Version 1)
Quarter: 2020Q3

REPORT INFORMATION
  Report Type: Spontaneous
  Country: US (occurrence: US)
  Receive Date: 20200721
  Receipt Date: 20200721
  Transmission Date: 20201103
  Serious: Yes (Other)
  Sender: FDA-Public Use
  Company Number: US-MEITHEAL PHARMACEUTICALS-2020MHL00044

PATIENT

DRUGS (4)
  1. DAUNORUBICIN [Concomitant]
     Active Substance: DAUNORUBICIN
     Dosage: DAYS 1, 3, AND 5
     Route: 042
  2. ETOPOSIDE. [Concomitant]
     Active Substance: ETOPOSIDE
     Dosage: DAYS 1?4
     Route: 042
  3. CYTARABINE. [Suspect]
     Active Substance: CYTARABINE
     Dosage: EVERY 12 HOURS ON DAYS 1,3, AND 5
     Route: 042
  4. CYTARABINE. [Suspect]
     Active Substance: CYTARABINE
     Indication: HAEMATOLOGICAL MALIGNANCY
     Dosage: ON DAYS 0 AND 3
     Route: 037

REACTIONS (1)
  - Cerebral vasoconstriction [Recovered/Resolved]
